FAERS Safety Report 4772063-5 (Version None)
Quarter: 2005Q3

REPORT INFORMATION
  Report Type: 
  Country: None (occurrence: None)
  Receive Date: 20050918
  Receipt Date: 20050629
  Transmission Date: 20060218
  Serious: Yes (Hospitalization)
  Sender: FDA-Public Use
  Company Number: US-MERCK-0507USA00201

PATIENT
  Age: 64 Year
  Sex: Male
  Weight: 87 kg

DRUGS (6)
  1. VIOXX [Suspect]
     Indication: ARTHRALGIA
     Route: 048
     Dates: start: 20010402, end: 20040901
  2. PROCARDIA [Concomitant]
     Indication: HYPERTENSION
     Route: 048
     Dates: start: 19980101, end: 20040101
  3. PRILOSEC [Concomitant]
     Route: 048
  4. PREVACID [Concomitant]
     Route: 048
  5. MIRALAX [Concomitant]
     Route: 065
  6. ASPIRIN [Concomitant]
     Route: 065

REACTIONS (5)
  - ACUTE MYOCARDIAL INFARCTION [None]
  - ANGINA UNSTABLE [None]
  - ESCHERICHIA URINARY TRACT INFECTION [None]
  - GASTROOESOPHAGEAL REFLUX DISEASE [None]
  - HYPOTENSION [None]
